FAERS Safety Report 4458240-1 (Version None)
Quarter: 2004Q3

REPORT INFORMATION
  Report Type: 
  Country: None (occurrence: None)
  Receive Date: 20040922
  Receipt Date: 20040907
  Transmission Date: 20050211
  Serious: Yes (Life-Threatening, Other)
  Sender: FDA-Public Use
  Company Number: GBS040915542

PATIENT
  Age: 46 Year
  Sex: Female
  Weight: 55 kg

DRUGS (1)
  1. RALOXIFENE HCL [Suspect]
     Indication: MENOPAUSAL SYMPTOMS PROPHYLAXIS
     Dosage: 60 MG DAY
     Dates: start: 20040210, end: 20040520

REACTIONS (2)
  - BREAST CANCER STAGE II [None]
  - OESTROGEN RECEPTOR ASSAY POSITIVE [None]
